FAERS Safety Report 6327855-8 (Version None)
Quarter: 2009Q3

REPORT INFORMATION
  Report Type: 
  Country: None (occurrence: None)
  Receive Date: 20090824
  Receipt Date: 20090813
  Transmission Date: 20100115
  Serious: Yes (Other)
  Sender: FDA-Public Use
  Company Number: 2009AL005415

PATIENT
  Age: 60 Year
  Sex: Female

DRUGS (7)
  1. DICLOFENAC SODIUM [Suspect]
     Dosage: 50 MG; QD; PO
     Route: 048
     Dates: start: 20041201, end: 20081030
  2. ALENDRONIC ACID [Concomitant]
  3. LANSOPRAZOLE [Concomitant]
  4. LEFLUNOMIDE [Concomitant]
  5. ETANERCEPT [Concomitant]
  6. CALCICHEW [Concomitant]
  7. ATORVASTATIN [Concomitant]

REACTIONS (2)
  - RENAL FAILURE [None]
  - TUBULOINTERSTITIAL NEPHRITIS [None]
